FAERS Safety Report 20459884 (Version 1)
Quarter: 2022Q1

REPORT INFORMATION
  Report Type: Spontaneous
  Country: US (occurrence: None)
  Receive Date: 20220211
  Receipt Date: 20220211
  Transmission Date: 20220424
  Serious: Yes (Other)
  Sender: FDA-Public Use
  Company Number: US-ROCHE-3016344

PATIENT
  Age: 62 Year
  Sex: Female

DRUGS (4)
  1. CAPECITABINE [Suspect]
     Active Substance: CAPECITABINE
     Indication: Pancreatic carcinoma stage IV
     Dosage: BID DAYS 1-21 EVERY 28 DAYS ;ONGOING: NO
     Route: 048
     Dates: start: 20181206
  2. CAPECITABINE [Suspect]
     Active Substance: CAPECITABINE
     Dosage: REDUCED TO 1500 MG EVERY AM ;ONGOING: NO
     Route: 048
  3. CAPECITABINE [Suspect]
     Active Substance: CAPECITABINE
     Dosage: 1000MG EVERY PM ;ONGOING: NO
     Route: 048
  4. GEMCITABINE [Concomitant]
     Active Substance: GEMCITABINE
     Dosage: 1000 MG/M2 ON DAYS 1, 8, 15 EVERY 28 DAYS ;ONGOING: NO
     Dates: start: 20181206, end: 20190328

REACTIONS (18)
  - Mucosal inflammation [Unknown]
  - Palmar-plantar erythrodysaesthesia syndrome [Unknown]
  - Thrombocytopenia [Unknown]
  - Neutropenia [Unknown]
  - Weight decreased [Unknown]
  - Diarrhoea [Unknown]
  - Nausea [Unknown]
  - Haemorrhagic diathesis [Unknown]
  - Depressed mood [Unknown]
  - Nervousness [Unknown]
  - Anxiety [Unknown]
  - Disease progression [Unknown]
  - Ill-defined disorder [Unknown]
  - Presyncope [Unknown]
  - Atrial fibrillation [Unknown]
  - Peritoneal disorder [Unknown]
  - Thrombosis [Unknown]
  - Tumour marker increased [Unknown]

NARRATIVE: CASE EVENT DATE: 20181220
